FAERS Safety Report 7605690-8 (Version None)
Quarter: 2011Q3

REPORT INFORMATION
  Report Type: 
  Country: None (occurrence: None)
  Receive Date: 20110713
  Receipt Date: 20110706
  Transmission Date: 20111222
  Serious: Yes (Other)
  Sender: FDA-Public Use
  Company Number: US-JNJFOC-20110408044

PATIENT
  Sex: Male
  Weight: 104.33 kg

DRUGS (2)
  1. INVEGA SUSTENNA [Suspect]
     Indication: BIPOLAR DISORDER
     Route: 030
     Dates: start: 20100201, end: 20110101
  2. INVEGA SUSTENNA [Suspect]
     Indication: SCHIZOPHRENIA
     Route: 030
     Dates: start: 20100201, end: 20110101

REACTIONS (1)
  - WEIGHT INCREASED [None]
